FAERS Safety Report 8207094-6 (Version None)
Quarter: 2012Q1

REPORT INFORMATION
  Report Type: 
  Country: None (occurrence: None)
  Receive Date: 20120314
  Receipt Date: 20120305
  Transmission Date: 20120608
  Serious: Yes (Hospitalization)
  Sender: FDA-Public Use
  Company Number: FR-NOVOPROD-332609

PATIENT
  Age: 71 Year
  Sex: Male

DRUGS (13)
  1. AMOXICILLIN [Suspect]
     Indication: RHINITIS
  2. IRBESARTAN [Concomitant]
     Dosage: UNK
     Dates: start: 20081020, end: 20110601
  3. AMOXICILLIN [Suspect]
     Indication: PYREXIA
     Dosage: 3 G, QD
     Route: 065
     Dates: start: 20110525, end: 20110531
  4. LASIX [Concomitant]
     Dosage: 20 MG, QD
     Dates: start: 20101101, end: 20110614
  5. LANTUS [Concomitant]
     Dosage: 24 IU, QD
     Dates: end: 20110601
  6. BISOPROLOL FUMARATE [Concomitant]
     Dosage: 2.5 MG, QD
     Dates: start: 20100201
  7. ASPIRIN [Concomitant]
     Dosage: 160 MG, QD
  8. ASPIRIN [Concomitant]
     Dosage: 75 MG, UNK
     Dates: start: 20110624
  9. LERCANIDIPINE [Concomitant]
     Dosage: 20 MG, QD
     Dates: start: 20051020, end: 20110601
  10. REPAGLINIDE [Suspect]
     Indication: TYPE 2 DIABETES MELLITUS
     Dosage: 2 PER DAY
     Route: 065
     Dates: start: 20100201, end: 20110601
  11. BISOPROLOL FUMARATE [Concomitant]
     Dosage: 5 MG, BID
     Dates: start: 20110624
  12. METFORMIN HCL [Concomitant]
     Dosage: UNK
     Dates: start: 20100501, end: 20110601
  13. AMOXICILLIN [Suspect]
     Indication: DYSPNOEA

REACTIONS (3)
  - CONDITION AGGRAVATED [None]
  - RENAL FAILURE ACUTE [None]
  - EOSINOPHILIA [None]
